FAERS Safety Report 9222134 (Version 2)
Quarter: 2013Q2

REPORT INFORMATION
  Report Type: Spontaneous
  Country: JP (occurrence: JP)
  Receive Date: 20130410
  Receipt Date: 20130530
  Transmission Date: 20140414
  Serious: Yes (Hospitalization)
  Sender: FDA-Public Use
  Company Number: PHHY2013JP018675

PATIENT
  Age: 66 Year
  Sex: Male
  Weight: 67 kg

DRUGS (9)
  1. TEGRETOL [Suspect]
     Indication: TRIGEMINAL NEURALGIA
     Dosage: 400 MG, DAILY
     Route: 048
     Dates: start: 20121122, end: 20130212
  2. ALLOPURINOL [Suspect]
     Indication: HYPERURICAEMIA
     Dosage: 100 MG, DAILY
     Route: 048
     Dates: start: 20051115, end: 20130212
  3. AMLODIPINE [Concomitant]
     Indication: HYPERTENSION
     Dosage: 5 MG, DAILY
     Route: 048
     Dates: start: 20130111, end: 20130212
  4. BLOPRESS [Concomitant]
     Indication: HYPERTENSION
     Dosage: 8 MG, DAILY
     Route: 048
     Dates: start: 20110113, end: 20130212
  5. FUROSEMIDE [Concomitant]
     Indication: GENERALISED OEDEMA
     Dosage: 40 MG, DAILY
     Route: 048
     Dates: start: 20130202, end: 20130212
  6. BAYASPIRIN [Concomitant]
     Indication: PROPHYLAXIS
     Dosage: 100 MG, DAILY
     Route: 048
     Dates: start: 20121206, end: 20130212
  7. METGLUCO [Concomitant]
     Indication: TYPE 2 DIABETES MELLITUS
     Dosage: 500 MG, DAILY
     Route: 048
     Dates: start: 20081011, end: 20130212
  8. NOVORAPID [Concomitant]
     Indication: TYPE 2 DIABETES MELLITUS
     Dosage: 14 IU, UNK
     Route: 058
     Dates: start: 20121129
  9. LANTUS [Concomitant]
     Indication: TYPE 2 DIABETES MELLITUS
     Dosage: 6 IU, UNK
     Route: 058
     Dates: start: 20121129

REACTIONS (15)
  - Renal failure acute [Recovering/Resolving]
  - Lip swelling [Recovered/Resolved]
  - Face oedema [Recovered/Resolved]
  - Nephrotic syndrome [Recovering/Resolving]
  - Drug reaction with eosinophilia and systemic symptoms [Recovered/Resolved]
  - Erythema [Recovered/Resolved]
  - Drug eruption [Unknown]
  - Rash generalised [Recovered/Resolved]
  - Erythema multiforme [Recovered/Resolved]
  - Anaemia [Recovering/Resolving]
  - White blood cell count increased [Unknown]
  - Blood cholinesterase decreased [Unknown]
  - Pyrexia [Recovered/Resolved]
  - Gamma-glutamyltransferase increased [Unknown]
  - Blood alkaline phosphatase increased [Unknown]
